FAERS Safety Report 8422009-3 (Version None)
Quarter: 2012Q2

REPORT INFORMATION
  Report Type: 
  Country: None (occurrence: None)
  Receive Date: 20120605
  Receipt Date: 20120605
  Transmission Date: 20120825
  Serious: Yes (Hospitalization)
  Sender: FDA-Public Use
  Company Number: None

PATIENT
  Sex: Female
  Weight: 99.7913 kg

DRUGS (1)
  1. PREDNISONE [Suspect]
     Indication: HERPES ZOSTER
     Dosage: 10MG 4 TABS 3 DAILY 3 TABS 3 DAILY 2 TABS 3 DAILY AND THEN 1 TAB 3 DAILY ORAL
     Route: 048
     Dates: start: 20120427, end: 20120501

REACTIONS (3)
  - VOMITING [None]
  - DIZZINESS [None]
  - HEADACHE [None]
